FAERS Safety Report 4936763-6 (Version None)
Quarter: 2006Q1

REPORT INFORMATION
  Report Type: 
  Country: None (occurrence: None)
  Receive Date: 20060302
  Receipt Date: 20060130
  Transmission Date: 20060701
  Serious: Yes (Death)
  Sender: FDA-Public Use
  Company Number: 05H-087-0303849-00

PATIENT
  Age: 67 Year
  Sex: Male

DRUGS (1)
  1. PRECEDEX [Suspect]
     Indication: SEDATIVE THERAPY
     Dates: start: 20051107

REACTIONS (3)
  - MULTI-ORGAN FAILURE [None]
  - PERITONITIS [None]
  - SEPSIS [None]
